FAERS Safety Report 25538967 (Version 4)
Quarter: 2025Q3

REPORT INFORMATION
  Report Type: Spontaneous
  Country: US (occurrence: US)
  Receive Date: 20250710
  Receipt Date: 20250916
  Transmission Date: 20251020
  Serious: No
  Sender: PFIZER
  Company Number: US-PFIZER INC-202500130251

PATIENT
  Age: 73 Year
  Sex: Female
  Weight: 90.72 kg

DRUGS (18)
  1. GENOTROPIN [Suspect]
     Active Substance: SOMATROPIN
     Indication: Growth hormone deficiency
     Dosage: 4 MG, DAILY (EVERY NIGHT)
  2. GENOTROPIN [Suspect]
     Active Substance: SOMATROPIN
     Dosage: 0.4 MG, DAILY
  3. HUMULIN R [Concomitant]
     Active Substance: INSULIN HUMAN
  4. GLIPIZIDE [Concomitant]
     Active Substance: GLIPIZIDE
     Dosage: 10 MG, 2X/DAY
  5. PREDNISONE [Concomitant]
     Active Substance: PREDNISONE
     Dosage: 5 MG, 2X/DAY
  6. LEVOTHYROXINE [Concomitant]
     Active Substance: LEVOTHYROXINE
     Dosage: 88 MG, 1X/DAY
  7. PEPCID [Concomitant]
     Active Substance: FAMOTIDINE
     Dosage: 20 MG, 2X/DAY
  8. VITAMIN D3 [Concomitant]
     Active Substance: CHOLECALCIFEROL
     Dosage: UNK, 1X/DAY
  9. COBAMAMIDE [Concomitant]
     Active Substance: COBAMAMIDE
     Dosage: 500 UG, 1X/DAY
  10. POTASSIUM CHLORIDE [Concomitant]
     Active Substance: POTASSIUM CHLORIDE
     Dosage: 10 MEQ, 1X/DAY
  11. DOXAZOSIN [Concomitant]
     Active Substance: DOXAZOSIN MESYLATE
     Dosage: 6 MG, 2X/DAY (2 MILLIGRAM PLUS A 4 MILLIGRAM TABLET)
  12. ENALAPRIL [Concomitant]
     Active Substance: ENALAPRIL
     Dosage: 20 MG, 2X/DAY
  13. ALLEGRA [Concomitant]
     Active Substance: FEXOFENADINE HYDROCHLORIDE
     Indication: Sinus disorder
     Dosage: UNK, 1X/DAY
  14. CEFIXIME [Concomitant]
     Active Substance: CEFIXIME
  15. IBUPROFEN [Concomitant]
     Active Substance: IBUPROFEN
  16. LYSINE [Concomitant]
     Active Substance: LYSINE
  17. FISH OIL [Concomitant]
     Active Substance: FISH OIL
  18. CALCIUM [Concomitant]
     Active Substance: CALCIUM
     Dosage: 2 DF, 1X/DAY

REACTIONS (2)
  - Off label use [Unknown]
  - Device mechanical issue [Unknown]
